FAERS Safety Report 15105177 (Version 1)
Quarter: 2018Q3

REPORT INFORMATION
  Report Type: Other
  Country: US (occurrence: US)
  Receive Date: 20180704
  Receipt Date: 20180704
  Transmission Date: 20181010
  Serious: Yes (Hospitalization)
  Sender: FDA-Public Use
  Company Number: US-AJANTA PHARMA USA INC.-2051426

PATIENT
  Age: 72 Year
  Sex: Male

DRUGS (2)
  1. MEMANTINE HYDROCHLORIDE. [Suspect]
     Active Substance: MEMANTINE HYDROCHLORIDE
     Indication: VASCULAR DEMENTIA
  2. QUETIAPINE. [Concomitant]
     Active Substance: QUETIAPINE

REACTIONS (1)
  - Delirium [Recovered/Resolved]
